FAERS Safety Report 17310690 (Version 1)
Quarter: 2020Q1

REPORT INFORMATION
  Report Type: Spontaneous
  Country: US (occurrence: US)
  Receive Date: 20200123
  Receipt Date: 20200123
  Transmission Date: 20200409
  Serious: Yes (Other)
  Sender: FDA-Public Use
  Company Number: US-ROCHE-2295242

PATIENT
  Sex: Female
  Weight: 118.04 kg

DRUGS (1)
  1. RITUXAN [Suspect]
     Active Substance: RITUXIMAB
     Indication: RHEUMATOID ARTHRITIS
     Dosage: MOST RECENT DOSE OF RITUXAN ON 28/MAR/2019
     Route: 065
     Dates: start: 20190314

REACTIONS (3)
  - Tinnitus [Not Recovered/Not Resolved]
  - Headache [Recovered/Resolved]
  - Fungal infection [Recovered/Resolved]
